FAERS Safety Report 7577906-8 (Version None)
Quarter: 2011Q2

REPORT INFORMATION
  Report Type: 
  Country: None (occurrence: None)
  Receive Date: 20110628
  Receipt Date: 20110623
  Transmission Date: 20111010
  Serious: Yes (Death, Other)
  Sender: FDA-Public Use
  Company Number: PHEH2009US02491

PATIENT
  Sex: Female

DRUGS (1)
  1. AREDIA [Suspect]

REACTIONS (11)
  - ATELECTASIS [None]
  - GENERAL PHYSICAL HEALTH DETERIORATION [None]
  - PAIN [None]
  - ASCITES [None]
  - INTERVERTEBRAL DISC DEGENERATION [None]
  - ANXIETY [None]
  - POST PROCEDURAL HAEMATOMA [None]
  - ILEUS [None]
  - OSTEONECROSIS OF JAW [None]
  - DEATH [None]
  - DECREASED INTEREST [None]
